FAERS Safety Report 25140686 (Version 1)
Quarter: 2025Q1

REPORT INFORMATION
  Report Type: Spontaneous
  Country: US (occurrence: US)
  Receive Date: 20250331
  Receipt Date: 20250331
  Transmission Date: 20250409
  Serious: Yes (Life-Threatening, Hospitalization, Other)
  Sender: AMGEN
  Company Number: US-AMGEN-USASP2025058617

PATIENT
  Sex: Male

DRUGS (10)
  1. PREDNISONE [Suspect]
     Active Substance: PREDNISONE
     Indication: B precursor type acute leukaemia
     Route: 065
  2. BLINATUMOMAB [Suspect]
     Active Substance: BLINATUMOMAB
     Indication: B precursor type acute leukaemia
     Dosage: 15 MICROGRAM/SQ. METER, QD
     Route: 065
     Dates: start: 20180604
  3. BLINATUMOMAB [Suspect]
     Active Substance: BLINATUMOMAB
     Dosage: 5 MICROGRAM/SQ. METER, QD
     Route: 065
  4. METHOTREXATE [Concomitant]
     Active Substance: METHOTREXATE
     Indication: B precursor type acute leukaemia
     Route: 029
     Dates: start: 20171219, end: 20180402
  5. AZACITIDINE [Concomitant]
     Active Substance: AZACITIDINE
     Indication: B precursor type acute leukaemia
     Route: 065
     Dates: start: 20171219, end: 20180402
  6. CYTARABINE [Concomitant]
     Active Substance: CYTARABINE
     Indication: B precursor type acute leukaemia
     Route: 029
     Dates: start: 20171219, end: 20180402
  7. HYDROCORTISONE [Concomitant]
     Active Substance: HYDROCORTISONE
     Indication: B precursor type acute leukaemia
     Route: 029
     Dates: start: 20171219, end: 20180402
  8. HUMAN IMMUNOGLOBULIN G [Concomitant]
     Active Substance: HUMAN IMMUNOGLOBULIN G
     Indication: B-cell aplasia
     Route: 040
  9. HUMAN IMMUNOGLOBULIN G [Concomitant]
     Active Substance: HUMAN IMMUNOGLOBULIN G
     Indication: Hypogammaglobulinaemia
  10. PALIVIZUMAB [Concomitant]
     Active Substance: PALIVIZUMAB

REACTIONS (18)
  - Respiratory failure [Unknown]
  - B precursor type acute leukaemia [Recovered/Resolved]
  - Central nervous system leukaemia [Recovered/Resolved]
  - Hypothermia [Unknown]
  - Extradural haematoma [Unknown]
  - Adrenal insufficiency [Unknown]
  - Venoocclusive disease [Unknown]
  - Epilepsy [Unknown]
  - Euthyroid sick syndrome [Unknown]
  - Hypogammaglobulinaemia [Unknown]
  - B-cell aplasia [Unknown]
  - Blood thyroid stimulating hormone increased [Recovered/Resolved]
  - Seizure [Unknown]
  - Lethargy [Unknown]
  - Attention deficit hyperactivity disorder [Unknown]
  - Mucosal inflammation [Unknown]
  - Therapy partial responder [Unknown]
  - Bradycardia [Unknown]

NARRATIVE: CASE EVENT DATE: 20180101
